FAERS Safety Report 7957724-9 (Version None)
Quarter: 2011Q4

REPORT INFORMATION
  Report Type: 
  Country: None (occurrence: None)
  Receive Date: 20111205
  Receipt Date: 20111124
  Transmission Date: 20120403
  Serious: Yes (Hospitalization)
  Sender: FDA-Public Use
  Company Number: CA-JNJFOC-20111201334

PATIENT
  Sex: Male
  Weight: 92 kg

DRUGS (3)
  1. REMICADE [Suspect]
     Indication: CROHN'S DISEASE
     Route: 042
     Dates: start: 20060101
  2. ANTIBIOTICS [Concomitant]
     Route: 042
  3. SOLU-CORTEF [Concomitant]
     Route: 042

REACTIONS (2)
  - RENAL MASS [None]
  - FLANK PAIN [None]
